FAERS Safety Report 7960078-5 (Version None)
Quarter: 2011Q4

REPORT INFORMATION
  Report Type: 
  Country: None (occurrence: None)
  Receive Date: 20111206
  Receipt Date: 20111129
  Transmission Date: 20120403
  Serious: Yes (Other)
  Sender: FDA-Public Use
  Company Number: PHHY2011BR105030

PATIENT
  Sex: Female

DRUGS (2)
  1. STALEVO 100 [Suspect]
     Dosage: UNK UKN, TID
     Route: 048
  2. STALEVO 100 [Suspect]
     Dosage: 1 DF, QD
     Route: 048

REACTIONS (3)
  - PARKINSON'S DISEASE [None]
  - DIPLEGIA [None]
  - ABASIA [None]
